FAERS Safety Report 6417455-3 (Version None)
Quarter: 2009Q4

REPORT INFORMATION
  Report Type: 
  Country: None (occurrence: None)
  Receive Date: 20091026
  Receipt Date: 20091016
  Transmission Date: 20100525
  Serious: Yes (Other)
  Sender: FDA-Public Use
  Company Number: 230164J09BRA

PATIENT
  Age: 59 Year
  Sex: Female

DRUGS (4)
  1. REBIF [Suspect]
     Indication: MULTIPLE SCLEROSIS
     Dosage: 22 MCG, 3 IN 1 WEEKS
     Dates: start: 20081002, end: 20090420
  2. REBIF [Suspect]
     Indication: MULTIPLE SCLEROSIS
     Dosage: 22 MCG, 3 IN 1 WEEKS
     Dates: start: 20090420, end: 20090916
  3. LIOREZAL (BACLOFEN) [Concomitant]
  4. SYNTHROID [Concomitant]

REACTIONS (1)
  - MENINGIOMA BENIGN [None]
